FAERS Safety Report 6554204-2 (Version None)
Quarter: 2010Q1

REPORT INFORMATION
  Report Type: 
  Country: None (occurrence: None)
  Receive Date: 20100122
  Receipt Date: 20100106
  Transmission Date: 20100710
  Serious: Yes (Hospitalization)
  Sender: FDA-Public Use
  Company Number: 2010AC000038

PATIENT
  Age: 77 Year
  Sex: Female

DRUGS (21)
  1. DIGOXIN [Suspect]
  2. CATAPRES [Concomitant]
  3. COUMADIN [Concomitant]
  4. LISINOPRIL [Concomitant]
  5. VIOXX [Concomitant]
  6. CARDIZEM [Concomitant]
  7. HYDROCHLOROTHIAZIDE [Concomitant]
  8. TYLENOL-500 [Concomitant]
  9. EFFEXOR [Concomitant]
  10. PEPCID [Concomitant]
  11. TRENTAL [Concomitant]
  12. CELEBREX [Concomitant]
  13. ZOCOR [Concomitant]
  14. PERCOCET [Concomitant]
  15. FLOXIN [Concomitant]
  16. FUROSEMIDE [Concomitant]
  17. KLOR-CON [Concomitant]
  18. CARTIA XT [Concomitant]
  19. LACTINOL-E [Concomitant]
  20. BETAMETH/CLOTRIMAZOL [Concomitant]
  21. TACTINAL [Concomitant]

REACTIONS (11)
  - ANGINA UNSTABLE [None]
  - ANXIETY [None]
  - CEREBROVASCULAR ACCIDENT [None]
  - CORONARY ARTERY DISEASE [None]
  - ECONOMIC PROBLEM [None]
  - EMOTIONAL DISORDER [None]
  - HEART RATE INCREASED [None]
  - INJURY [None]
  - MENTAL STATUS CHANGES [None]
  - PAIN [None]
  - URINARY TRACT INFECTION [None]
